FAERS Safety Report 8295838-7 (Version None)
Quarter: 2012Q2

REPORT INFORMATION
  Report Type: 
  Country: None (occurrence: None)
  Receive Date: 20120418
  Receipt Date: 20120412
  Transmission Date: 20120825
  Serious: Yes (Disabling, Other)
  Sender: FDA-Public Use
  Company Number: US-PFIZER INC-2012091761

PATIENT
  Sex: Female
  Weight: 73.016 kg

DRUGS (2)
  1. NEURONTIN [Suspect]
     Dosage: 450MG, DAILY
  2. NEURONTIN [Suspect]
     Indication: BIPOLAR DISORDER
     Dosage: 3000 MG, DAILY
     Dates: start: 19960901

REACTIONS (1)
  - SPEECH DISORDER [None]
